FAERS Safety Report 14924734 (Version 2)
Quarter: 2018Q3

REPORT INFORMATION
  Report Type: Report from Study
  Country: ES (occurrence: ES)
  Receive Date: 20180522
  Receipt Date: 20180913
  Transmission Date: 20181010
  Serious: Yes (Life-Threatening, Hospitalization)
  Sender: FDA-Public Use
  Company Number: ES-CELGENEUS-ESP-20180504395

PATIENT
  Age: 58 Year
  Sex: Male
  Weight: 97 kg

DRUGS (39)
  1. DEXAMETHASONE. [Suspect]
     Active Substance: DEXAMETHASONE
     Indication: PLASMA CELL MYELOMA
     Route: 048
     Dates: start: 20170220
  2. SIMVASTATINA [Concomitant]
     Active Substance: SIMVASTATIN
     Dosage: 40 MILLIGRAM
     Route: 048
     Dates: start: 20180326, end: 20180404
  3. CAFINITRINA [Concomitant]
     Indication: ANGINA PECTORIS
     Dosage: 20 MILLIGRAM
     Route: 065
     Dates: start: 20170207
  4. COTRIMOXAZOLE [Concomitant]
     Active Substance: SULFAMETHOXAZOLE\TRIMETHOPRIM
     Indication: PRODUCT USED FOR UNKNOWN INDICATION
     Dosage: 160MG + 800MG AT BREAKFAST AND LUNCH
     Route: 048
     Dates: start: 20180327, end: 20180404
  5. ALPRAZOLAM. [Concomitant]
     Active Substance: ALPRAZOLAM
     Indication: PRODUCT USED FOR UNKNOWN INDICATION
     Dosage: .25 MILLIGRAM
     Route: 048
     Dates: start: 20180327, end: 20180404
  6. IPRATROPRIUM BROMIDE [Concomitant]
     Dosage: 3 INHALATIONS/6HRS
     Route: 055
     Dates: start: 20180326, end: 20180404
  7. ALOPURINOL [Concomitant]
     Active Substance: ALLOPURINOL
     Dosage: 300 MILLIGRAM
     Route: 048
     Dates: start: 20180326, end: 20180404
  8. FOLIC ACID. [Concomitant]
     Active Substance: FOLIC ACID
     Dosage: 5 MILLIGRAM
     Route: 048
     Dates: start: 20180327, end: 20180404
  9. LOSARTAN. [Concomitant]
     Active Substance: LOSARTAN
     Dosage: 100 MILLIGRAM
     Route: 048
     Dates: start: 20180326, end: 20180404
  10. METHYLPREDNISOLONA [Concomitant]
     Dosage: 20 MILLIGRAM
     Route: 041
     Dates: start: 20180326, end: 20180326
  11. ACICLOVIR [Concomitant]
     Active Substance: ACYCLOVIR
     Dosage: 800 MILLIGRAM
     Route: 048
     Dates: start: 20180327, end: 20180404
  12. ACENOCUMAROL [Concomitant]
     Active Substance: ACENOCOUMAROL
     Indication: PRODUCT USED FOR UNKNOWN INDICATION
     Route: 048
     Dates: start: 20180329, end: 20180404
  13. FOLIC ACID. [Concomitant]
     Active Substance: FOLIC ACID
     Indication: PRODUCT USED FOR UNKNOWN INDICATION
     Dosage: 5 MILLIGRAM
     Route: 048
     Dates: start: 20180326, end: 20180327
  14. PARACETAMOL [Concomitant]
     Active Substance: ACETAMINOPHEN
     Dosage: 3 GRAM
     Route: 041
     Dates: start: 20180326, end: 20180329
  15. PREGABALIN. [Concomitant]
     Active Substance: PREGABALIN
     Indication: PRODUCT USED FOR UNKNOWN INDICATION
     Dosage: 300 MILLIGRAM
     Route: 048
     Dates: start: 20180326, end: 20180404
  16. REVLIMID [Suspect]
     Active Substance: LENALIDOMIDE
     Indication: PLASMA CELL MYELOMA
     Route: 048
     Dates: start: 20170220, end: 20180321
  17. DIGOXINA [Concomitant]
     Active Substance: DIGOXIN
     Indication: ANGINA PECTORIS
     Dosage: .25 MILLIGRAM
     Route: 065
     Dates: start: 20180112
  18. ACICLOVIR [Concomitant]
     Active Substance: ACYCLOVIR
     Indication: PRODUCT USED FOR UNKNOWN INDICATION
     Dosage: 200 MILLIGRAM
     Route: 048
     Dates: start: 20180327, end: 20180327
  19. IPRATROPRIUM BROMIDE [Concomitant]
     Indication: PRODUCT USED FOR UNKNOWN INDICATION
     Dosage: 2000 MICROGRAM
     Route: 055
     Dates: start: 20180326, end: 20180326
  20. MLN9708 [Suspect]
     Active Substance: IXAZOMIB
     Indication: PLASMA CELL MYELOMA
     Route: 048
     Dates: start: 20170220
  21. DIGOXINA [Concomitant]
     Active Substance: DIGOXIN
     Dosage: .25 MILLIGRAM
     Route: 048
     Dates: start: 20180327, end: 20180404
  22. ENOXAPARINA [Concomitant]
     Active Substance: ENOXAPARIN
     Indication: PRODUCT USED FOR UNKNOWN INDICATION
     Dosage: 200 MILLIGRAM
     Route: 058
     Dates: start: 20180326, end: 20180404
  23. METHYLPREDNISOLONA [Concomitant]
     Dosage: 20 MILLIGRAM
     Route: 041
     Dates: start: 20180326, end: 20180328
  24. PREDNISONA [Concomitant]
     Active Substance: PREDNISONE
     Indication: PRODUCT USED FOR UNKNOWN INDICATION
     Dosage: 10 MILLIGRAM
     Route: 048
     Dates: start: 20180328, end: 20180403
  25. ATENOLOL. [Concomitant]
     Active Substance: ATENOLOL
     Indication: PRODUCT USED FOR UNKNOWN INDICATION
     Dosage: 50 MILLIGRAM
     Route: 048
     Dates: start: 20180326, end: 20180327
  26. PARACETAMOL [Concomitant]
     Active Substance: ACETAMINOPHEN
     Dosage: 800 MILLIGRAM
     Route: 048
     Dates: start: 20180327, end: 20180404
  27. OMEPRAZOL [Concomitant]
     Active Substance: OMEPRAZOLE
     Indication: GASTRITIS PROPHYLAXIS
     Dosage: 20 MILLIGRAM
     Route: 065
     Dates: start: 20151103
  28. DIGOXINA [Concomitant]
     Active Substance: DIGOXIN
     Dosage: .25 MILLIGRAM
     Route: 048
     Dates: start: 20180326, end: 20180327
  29. SINTROM [Concomitant]
     Active Substance: ACENOCOUMAROL
     Indication: ISCHAEMIC CARDIOMYOPATHY
     Dosage: 2 MILLIGRAM
     Route: 065
     Dates: start: 20170207
  30. ALOPURINOL [Concomitant]
     Active Substance: ALLOPURINOL
     Indication: HYPERURICAEMIA
     Dosage: 300 MILLIGRAM
     Route: 065
     Dates: start: 20140126
  31. LOSARTAN. [Concomitant]
     Active Substance: LOSARTAN
     Indication: PRODUCT USED FOR UNKNOWN INDICATION
     Dosage: 100 MILLIGRAM
     Route: 065
     Dates: start: 20090519
  32. PARACETAMOL [Concomitant]
     Active Substance: ACETAMINOPHEN
     Indication: PRODUCT USED FOR UNKNOWN INDICATION
     Dosage: 1 GRAM
     Route: 041
     Dates: start: 20180326, end: 20180326
  33. IPRATROPRIUM BROMIDE [Concomitant]
     Dosage: 2000 MICROGRAM
     Route: 055
     Dates: start: 20180326, end: 20180326
  34. ATROVENT [Concomitant]
     Active Substance: IPRATROPIUM BROMIDE
     Indication: PROPHYLAXIS
     Route: 055
     Dates: start: 20180209
  35. OMEPRAZOL [Concomitant]
     Active Substance: OMEPRAZOLE
     Dosage: 20 MILLIGRAM
     Route: 048
     Dates: start: 20180326, end: 20180404
  36. SIMVASTATINA [Concomitant]
     Active Substance: SIMVASTATIN
     Indication: DYSLIPIDAEMIA
     Dosage: 40 MILLIGRAM
     Route: 065
     Dates: start: 20121122
  37. METHYLPREDNISOLONA [Concomitant]
     Indication: PRODUCT USED FOR UNKNOWN INDICATION
     Dosage: 80 MILLIGRAM
     Route: 041
     Dates: start: 20180326, end: 20180326
  38. BUDESONIDE. [Concomitant]
     Active Substance: BUDESONIDE
     Indication: PRODUCT USED FOR UNKNOWN INDICATION
     Dosage: 2 INHALATIONS/8HRS
     Route: 055
     Dates: start: 20180326, end: 20180329
  39. BUDESONIDE. [Concomitant]
     Active Substance: BUDESONIDE
     Dosage: 2 INHALATIONS/8HRS
     Route: 055
     Dates: start: 20180326, end: 20180329

REACTIONS (1)
  - Bronchitis [Recovered/Resolved]

NARRATIVE: CASE EVENT DATE: 20180321
